FAERS Safety Report 6428006-1 (Version None)
Quarter: 2009Q4

REPORT INFORMATION
  Report Type: 
  Country: None (occurrence: None)
  Receive Date: 20091102
  Receipt Date: 20091019
  Transmission Date: 20100525
  Serious: Yes (Other)
  Sender: FDA-Public Use
  Company Number: A-CH2009-28361

PATIENT
  Sex: Female

DRUGS (2)
  1. TRACLEER [Suspect]
     Indication: RAYNAUD'S PHENOMENON
     Dosage: 125 MG, BID, ORAL
     Route: 048
     Dates: start: 20090501, end: 20090801
  2. TRACLEER [Suspect]
     Indication: RAYNAUD'S PHENOMENON
     Dosage: 125 MG, BID, ORAL
     Route: 048
     Dates: start: 20090801, end: 20091001

REACTIONS (3)
  - DRUG EXPOSURE DURING PREGNANCY [None]
  - OFF LABEL USE [None]
  - PREGNANCY [None]
